FAERS Safety Report 20845208 (Version 2)
Quarter: 2022Q2

REPORT INFORMATION
  Report Type: Spontaneous
  Country: US (occurrence: US)
  Receive Date: 20220518
  Receipt Date: 20220629
  Transmission Date: 20220721
  Serious: No
  Sender: FDA-Public Use
  Company Number: US-TEVA-2022-US-2013766

PATIENT
  Age: 40 Year
  Sex: Male

DRUGS (1)
  1. ADDERALL [Suspect]
     Active Substance: AMPHETAMINE ASPARTATE\AMPHETAMINE SULFATE\DEXTROAMPHETAMINE SACCHARATE\DEXTROAMPHETAMINE SULFATE
     Indication: Attention deficit hyperactivity disorder
     Route: 065
     Dates: start: 1998

REACTIONS (7)
  - Haemorrhoids [Unknown]
  - Drug ineffective [Unknown]
  - Confusional state [Unknown]
  - Vertigo [Unknown]
  - Nausea [Unknown]
  - Taste disorder [Unknown]
  - Constipation [Unknown]

NARRATIVE: CASE EVENT DATE: 20220101
